FAERS Safety Report 4570582-8 (Version None)
Quarter: 2005Q1

REPORT INFORMATION
  Report Type: 
  Country: None (occurrence: None)
  Receive Date: 20050204
  Receipt Date: 20031219
  Transmission Date: 20050727
  Serious: Yes (Hospitalization, Other)
  Sender: FDA-Public Use
  Company Number: US-GLAXOSMITHKLINE-A0497610A

PATIENT
  Age: 43 Year
  Sex: Male

DRUGS (3)
  1. PAXIL [Suspect]
     Indication: DEPRESSION
     Dosage: 20MG TWICE PER DAY
     Route: 048
     Dates: start: 19970101
  2. TRAZODONE [Concomitant]
  3. PRINIVIL [Concomitant]

REACTIONS (10)
  - AGITATION [None]
  - ANGER [None]
  - DEPRESSION [None]
  - DRUG WITHDRAWAL SYNDROME [None]
  - EUPHORIC MOOD [None]
  - HALLUCINATION, AUDITORY [None]
  - INJURY [None]
  - INSOMNIA [None]
  - PARAESTHESIA [None]
  - SUICIDAL IDEATION [None]
